FAERS Safety Report 5110693-1 (Version None)
Quarter: 2006Q3

REPORT INFORMATION
  Report Type: 
  Country: None (occurrence: None)
  Receive Date: 20060919
  Receipt Date: 20060911
  Transmission Date: 20061208
  Serious: Yes (Hospitalization)
  Sender: FDA-Public Use
  Company Number: 2006BI012945

PATIENT
  Age: 51 Year
  Sex: Female

DRUGS (2)
  1. AVONEX [Suspect]
     Indication: MULTIPLE SCLEROSIS
     Dosage: 30 UG/QW;IM
     Route: 030
     Dates: start: 19960709, end: 19981118
  2. AVONEX [Suspect]
     Indication: MULTIPLE SCLEROSIS
     Dosage: 30 UG;QW;IM
     Route: 030
     Dates: start: 20060208

REACTIONS (5)
  - EXOSTOSIS [None]
  - JOINT INJURY [None]
  - NECK INJURY [None]
  - PAIN [None]
  - ROTATOR CUFF SYNDROME [None]
